FAERS Safety Report 10236431 (Version 1)
Quarter: 2014Q2

REPORT INFORMATION
  Report Type: Spontaneous
  Country: US (occurrence: US)
  Receive Date: 20140613
  Receipt Date: 20140613
  Transmission Date: 20141212
  Serious: Yes (Hospitalization)
  Sender: FDA-Public Use
  Company Number: US-ASTELLAS-2014US006669

PATIENT
  Sex: Male

DRUGS (1)
  1. XTANDI [Suspect]
     Indication: PROSTATE CANCER
     Route: 048
     Dates: start: 20140425

REACTIONS (6)
  - Hospitalisation [Unknown]
  - Malaise [Unknown]
  - Diarrhoea [Unknown]
  - Lethargy [Unknown]
  - Hypersomnia [Unknown]
  - Palliative care [Unknown]
